FAERS Safety Report 25289132 (Version 3)
Quarter: 2025Q4

REPORT INFORMATION
  Report Type: Spontaneous
  Country: AR (occurrence: AR)
  Receive Date: 20250509
  Receipt Date: 20251125
  Transmission Date: 20260118
  Serious: Yes (Other)
  Sender: SANDOZ
  Company Number: AR-002147023-NVSC2025AR016028

PATIENT
  Age: 63 Year
  Sex: Female

DRUGS (6)
  1. FULVESTRANT [Suspect]
     Active Substance: FULVESTRANT
     Indication: Product used for unknown indication
     Dosage: 2 DOSAGE FORM (2 OF 250 MG)
     Route: 065
  2. FULVESTRANT [Suspect]
     Active Substance: FULVESTRANT
     Dosage: 250 MG
     Route: 065
  3. KISQALI [Suspect]
     Active Substance: RIBOCICLIB SUCCINATE
     Indication: Breast cancer metastatic
     Dosage: 200 MG, TID
     Route: 048
     Dates: start: 20240321
  4. KISQALI [Suspect]
     Active Substance: RIBOCICLIB SUCCINATE
     Dosage: 600 MG, QD
     Route: 048
  5. KISQALI [Suspect]
     Active Substance: RIBOCICLIB SUCCINATE
     Dosage: UNK, QD
     Route: 065
  6. ZOLEDRONIC ACID [Suspect]
     Active Substance: ZOLEDRONIC ACID
     Indication: Product used for unknown indication
     Dosage: 4 MG
     Route: 065

REACTIONS (10)
  - Neck pain [Unknown]
  - Musculoskeletal stiffness [Unknown]
  - Musculoskeletal discomfort [Unknown]
  - Appendicitis [Unknown]
  - Intervertebral disc protrusion [Unknown]
  - Arthralgia [Unknown]
  - Feeling cold [Unknown]
  - Pain [Unknown]
  - Vomiting [Unknown]
  - Product availability issue [Unknown]

NARRATIVE: CASE EVENT DATE: 20241112
